FAERS Safety Report 7129270-6 (Version None)
Quarter: 2010Q4

REPORT INFORMATION
  Report Type: 
  Country: None (occurrence: None)
  Receive Date: 20101130
  Receipt Date: 20100919
  Transmission Date: 20110411
  Serious: Yes (Hospitalization)
  Sender: FDA-Public Use
  Company Number: PHHY2010EG69103

PATIENT
  Sex: Male
  Weight: 55 kg

DRUGS (1)
  1. CERTICAN [Suspect]
     Indication: TRANSPLANT
     Dosage: 1.5 MG, QD
     Route: 048
     Dates: start: 20100225, end: 20100912

REACTIONS (1)
  - POST PROCEDURAL URINE LEAK [None]
